FAERS Safety Report 4601200-8 (Version None)
Quarter: 2005Q1

REPORT INFORMATION
  Report Type: 
  Country: None (occurrence: None)
  Receive Date: 20050304
  Receipt Date: 20050216
  Transmission Date: 20050727
  Serious: Yes (Hospitalization)
  Sender: FDA-Public Use
  Company Number: 2005US000238

PATIENT
  Age: 52 Year
  Sex: Male

DRUGS (8)
  1. PROGRAF [Suspect]
     Indication: PROPHYLAXIS AGAINST TRANSPLANT REJECTION
  2. PREDNISONE [Concomitant]
  3. LANSOPRAZOLE [Concomitant]
  4. SULFAMETHOXAZOLE + TRIMETHOPRIM [Concomitant]
  5. LAMIVUDIME (LAMIVUDINE) [Concomitant]
  6. INSULIN [Concomitant]
  7. AMLODIPINE [Concomitant]
  8. ATENOLOL [Concomitant]

REACTIONS (3)
  - NEPHROLITHIASIS [None]
  - PH URINE DECREASED [None]
  - RENAL COLIC [None]
